FAERS Safety Report 8177686-1 (Version None)
Quarter: 2012Q1

REPORT INFORMATION
  Report Type: 
  Country: None (occurrence: None)
  Receive Date: 20120301
  Receipt Date: 20120224
  Transmission Date: 20120608
  Serious: Yes (Other)
  Sender: FDA-Public Use
  Company Number: PHHY2012AU016451

PATIENT
  Sex: Female

DRUGS (1)
  1. ZOLEDRONOC ACID [Suspect]
     Dosage: 5 MG, UNK
     Route: 042
     Dates: start: 20110218

REACTIONS (4)
  - DIAPHRAGMATIC HERNIA [None]
  - WEIGHT DECREASED [None]
  - MALAISE [None]
  - ENDODONTIC PROCEDURE [None]
